FAERS Safety Report 7359925-X (Version None)
Quarter: 2011Q1

REPORT INFORMATION
  Report Type: 
  Country: None (occurrence: None)
  Receive Date: 20110317
  Receipt Date: 20110314
  Transmission Date: 20110831
  Serious: Yes (Other)
  Sender: FDA-Public Use
  Company Number: US-PFIZER INC-2011056105

PATIENT
  Sex: Female
  Weight: 54.422 kg

DRUGS (1)
  1. ADVIL LIQUI-GELS [Suspect]
     Indication: HEADACHE
     Dosage: UNK, THREE TIMES A DAY

REACTIONS (3)
  - RASH [None]
  - SKIN DISCOLOURATION [None]
  - OEDEMA PERIPHERAL [None]
